FAERS Safety Report 12878066 (Version 2)
Quarter: 2016Q4

REPORT INFORMATION
  Report Type: Spontaneous
  Country: US (occurrence: US)
  Receive Date: 20161024
  Receipt Date: 20161202
  Transmission Date: 20170207
  Serious: Yes (Other)
  Sender: FDA-Public Use
  Company Number: US-ELI_LILLY_AND_COMPANY-US201607009177

PATIENT
  Age: 49 Year
  Sex: Female

DRUGS (12)
  1. CYMBALTA [Suspect]
     Active Substance: DULOXETINE HYDROCHLORIDE
     Indication: PAIN
     Dosage: 60 MG, QD
     Route: 048
     Dates: start: 20120312
  2. ZESTRIL [Concomitant]
     Active Substance: LISINOPRIL
     Dosage: 20 MG, QD
     Route: 048
  3. CYMBALTA [Suspect]
     Active Substance: DULOXETINE HYDROCHLORIDE
     Dosage: 60 MG, EVERY 36 HOURS
     Route: 048
  4. ZOCOR [Concomitant]
     Active Substance: SIMVASTATIN
     Dosage: 20 MG, EACH EVENING
     Route: 048
  5. ZYRTEC [Concomitant]
     Active Substance: CETIRIZINE HYDROCHLORIDE
     Dosage: 10 MG, QD
     Route: 048
  6. DEPO-MEDROL [Concomitant]
     Active Substance: METHYLPREDNISOLONE ACETATE
     Dosage: 20 MG, UNKNOWN
  7. MARCAINE [Concomitant]
     Active Substance: BUPIVACAINE HYDROCHLORIDE
     Dosage: UNK, UNKNOWN
     Route: 065
  8. CYMBALTA [Suspect]
     Active Substance: DULOXETINE HYDROCHLORIDE
     Dosage: 60 MG, QD
     Route: 048
     Dates: end: 20150323
  9. DOXYCYCLINE HYCLATE. [Concomitant]
     Active Substance: DOXYCYCLINE HYCLATE
     Dosage: 100 MG, BID
     Route: 048
  10. CYMBALTA [Suspect]
     Active Substance: DULOXETINE HYDROCHLORIDE
     Dosage: 60 MG, EVERY 48 HOURS
     Route: 048
  11. LIDOCAINE. [Concomitant]
     Active Substance: LIDOCAINE
     Indication: NEURALGIA
     Dosage: 10 MG, SINGLE
     Route: 042
     Dates: start: 20120312
  12. LIDOCAINE. [Concomitant]
     Active Substance: LIDOCAINE
     Indication: NEURITIS

REACTIONS (35)
  - Transient ischaemic attack [Unknown]
  - Confusional state [Unknown]
  - Hypoaesthesia [Unknown]
  - Paraesthesia [Unknown]
  - Pain in extremity [Unknown]
  - Off label use [Unknown]
  - Diarrhoea [Unknown]
  - Fall [Unknown]
  - Anxiety [Unknown]
  - Insomnia [Unknown]
  - Lethargy [Unknown]
  - Pharyngitis [Unknown]
  - Migraine [Unknown]
  - Peripheral swelling [Unknown]
  - Drug withdrawal syndrome [Unknown]
  - Headache [Unknown]
  - Fatigue [Unknown]
  - Dizziness [Unknown]
  - Aphthous ulcer [Unknown]
  - Hypomania [Unknown]
  - Tremor [Unknown]
  - Contusion [Unknown]
  - Irritability [Unknown]
  - Dysphoria [Unknown]
  - Agitation [Unknown]
  - Abdominal pain [Unknown]
  - Affect lability [Unknown]
  - Nausea [Unknown]
  - Hyperhidrosis [Unknown]
  - Transient ischaemic attack [Unknown]
  - Sinusitis [Unknown]
  - Bladder pain [Unknown]
  - Tinnitus [Unknown]
  - Vomiting [Unknown]
  - Vertigo [Unknown]

NARRATIVE: CASE EVENT DATE: 201209
